FAERS Safety Report 9157878 (Version 2)
Quarter: 2013Q1

REPORT INFORMATION
  Report Type: Spontaneous
  Country: GB (occurrence: None)
  Receive Date: 20130213
  Receipt Date: 20130226
  Transmission Date: 20140127
  Serious: Yes (Life-Threatening, Hospitalization)
  Sender: FDA-Public Use
  Company Number: AUR-APL-2013-01321

PATIENT
  Age: 63 Year
  Sex: Male

DRUGS (11)
  1. CLOPIDOGREL [Suspect]
     Indication: PRODUCT USED FOR UNKNOWN INDICATION
     Dosage: 75 MG (75 MG, 1 IN 1 D), ORAL
     Route: 048
  2. ASPIRIN (ACETYLSALICYLIC ACID) [Suspect]
     Indication: PRODUCT USED FOR UNKNOWN INDICATION
     Dosage: 75 MG (75 MG, 1 IN 1 D), ORAL
     Route: 048
  3. WARFARIN (WARFARIN) [Suspect]
     Indication: PRODUCT USED FOR UNKNOWN INDICATION
     Dosage: ORAL
     Route: 048
  4. BISOPROLOL (BISOPROLOL) [Concomitant]
  5. DIGOXIN (DIGOXIN) [Concomitant]
  6. EPLERENONE (EPLERENONE) [Concomitant]
  7. FERROUS SULPHATE (FERRO-FOLSAN /00023601/) [Concomitant]
  8. FUROSEMIDE (FUROSEMIDE) [Concomitant]
  9. GLYCERYL TRINITRATE (GLYCERYL TRINITRATE) [Concomitant]
  10. NIQUITIN (NICOTINE) [Concomitant]
  11. SIMVASTATIN (SIMVASTATIN) [Concomitant]

REACTIONS (3)
  - International normalised ratio increased [None]
  - Haemorrhage [None]
  - Blood albumin decreased [None]
